FAERS Safety Report 12085392 (Version 5)
Quarter: 2016Q3

REPORT INFORMATION
  Report Type: Spontaneous
  Country: FR (occurrence: FR)
  Receive Date: 20160217
  Receipt Date: 20160928
  Transmission Date: 20161109
  Serious: Yes (Death, Other)
  Sender: FDA-Public Use
  Company Number: FR-ALEXION PHARMACEUTICALS INC-A201600945

PATIENT
  Age: 25 Year
  Sex: Male
  Weight: 64 kg

DRUGS (10)
  1. SOLIRIS [Suspect]
     Active Substance: ECULIZUMAB
     Dosage: 900 MG, 1 INFUSION EVERY 15 DAYS
     Route: 042
     Dates: start: 20100625, end: 20160105
  2. SOLIRIS [Suspect]
     Active Substance: ECULIZUMAB
     Dosage: 900 MG, 1 INFUSION EVERY 15 DAYS
     Route: 042
     Dates: start: 20100625, end: 20160105
  3. SOLIRIS [Suspect]
     Active Substance: ECULIZUMAB
     Indication: PAROXYSMAL NOCTURNAL HAEMOGLOBINURIA
     Dosage: 900 MG, 1 INFUSION EVERY 15 DAYS
     Route: 042
     Dates: start: 20100625, end: 20160105
  4. SOLIRIS [Suspect]
     Active Substance: ECULIZUMAB
     Dosage: 900 MG, 1 INFUSION EVERY 15 DAYS
     Route: 042
     Dates: start: 20100625, end: 20160105
  5. SOLIRIS [Suspect]
     Active Substance: ECULIZUMAB
     Dosage: 900 MG, 1 INFUSION EVERY 15 DAYS
     Route: 042
     Dates: start: 20100625, end: 20160105
  6. SOLIRIS [Suspect]
     Active Substance: ECULIZUMAB
     Dosage: 900 MG, 1 INFUSION EVERY 15 DAYS
     Route: 042
     Dates: start: 20100625, end: 20160105
  7. SOLIRIS [Suspect]
     Active Substance: ECULIZUMAB
     Dosage: 900 MG, 1 INFUSION EVERY 15 DAYS
     Route: 042
     Dates: start: 20100625, end: 20160105
  8. SOLIRIS [Suspect]
     Active Substance: ECULIZUMAB
     Dosage: 900 MG, 1 INFUSION EVERY 15 DAYS
     Route: 042
     Dates: start: 20100625, end: 20160105
  9. ORACILLINE                         /00001801/ [Concomitant]
     Active Substance: PENICILLIN V
     Indication: INFECTION PROPHYLAXIS
     Dosage: 1000 IU, BID
     Route: 065
  10. SOLIRIS [Suspect]
     Active Substance: ECULIZUMAB
     Dosage: 900 MG, 1 INFUSION EVERY 15 DAYS
     Route: 042
     Dates: start: 20100625, end: 20160105

REACTIONS (2)
  - Gastroenteritis [Fatal]
  - Encephalitis meningococcal [Fatal]

NARRATIVE: CASE EVENT DATE: 20160116
